FAERS Safety Report 8834591 (Version 1)
Quarter: 2012Q4

REPORT INFORMATION
  Report Type: 
  Country: US (occurrence: US)
  Receive Date: 20121010
  Receipt Date: 20121010
  Transmission Date: 20130627
  Serious: No
  Sender: FDA-Public Use
  Company Number: US-BAYER-2012-096749

PATIENT
  Age: 56 Year
  Sex: Female

DRUGS (2)
  1. CLIMARA PRO [Suspect]
     Indication: UNEVALUABLE EVENT
     Dosage: 0.045 mg, CONT
     Route: 062
  2. CLIMARA PRO [Suspect]
     Indication: UNEVALUABLE EVENT
     Dosage: 0.045 mg, CONT
     Route: 062
     Dates: start: 2002

REACTIONS (2)
  - Hot flush [Not Recovered/Not Resolved]
  - Product adhesion issue [None]
